FAERS Safety Report 15648709 (Version 2)
Quarter: 2019Q1

REPORT INFORMATION
  Report Type: Spontaneous
  Country: US (occurrence: US)
  Receive Date: 20181122
  Receipt Date: 20190125
  Transmission Date: 20190417
  Serious: Yes (Death)
  Sender: FDA-Public Use
  Company Number: US-TEVA-2018-US-977374

PATIENT
  Sex: Female

DRUGS (1)
  1. PROAIR HFA [Suspect]
     Active Substance: ALBUTEROL SULFATE

REACTIONS (1)
  - Death [Fatal]
